FAERS Safety Report 5514533-8 (Version None)
Quarter: 2007Q4

REPORT INFORMATION
  Report Type: 
  Country: None (occurrence: None)
  Receive Date: 20071113
  Receipt Date: 20071108
  Transmission Date: 20080405
  Serious: Yes (Other)
  Sender: FDA-Public Use
  Company Number: A0670649A

PATIENT
  Age: 8 Year
  Sex: Male

DRUGS (2)
  1. VENTOLIN [Suspect]
     Indication: ASTHMA
     Route: 055
     Dates: start: 20070809
  2. SINGULAIR [Concomitant]

REACTIONS (2)
  - DYSPNOEA [None]
  - TONSILLAR DISORDER [None]
